FAERS Safety Report 4674990-6 (Version None)
Quarter: 2005Q2

REPORT INFORMATION
  Report Type: 
  Country: None (occurrence: None)
  Receive Date: 20050525
  Receipt Date: 20050511
  Transmission Date: 20051028
  Serious: Yes (Death)
  Sender: FDA-Public Use
  Company Number: B0380679A

PATIENT
  Age: 48 Year
  Sex: Female

DRUGS (1)
  1. LAMICTAL [Suspect]

REACTIONS (5)
  - DEPRESSED LEVEL OF CONSCIOUSNESS [None]
  - DRUG TOXICITY [None]
  - HEPATIC STEATOSIS [None]
  - PULMONARY CONGESTION [None]
  - PULMONARY OEDEMA [None]
